FAERS Safety Report 5210520-8 (Version None)
Quarter: 2007Q1

REPORT INFORMATION
  Report Type: 
  Country: None (occurrence: None)
  Receive Date: 20070116
  Receipt Date: 20070116
  Transmission Date: 20070707
  Serious: Yes (Death, Hospitalization)
  Sender: FDA-Public Use
  Company Number: None

PATIENT
  Age: 62 Year
  Sex: Male
  Weight: 90.7194 kg

DRUGS (2)
  1. PROPOFOL [Suspect]
     Indication: AGITATION
     Dosage: UP TO 100 ML PER HOUR/TITRATED, AS NEEDED, IV DRIP
     Route: 041
     Dates: start: 20050112, end: 20050209
  2. PROPOFOL [Suspect]
     Indication: SEDATION
     Dosage: UP TO 100 ML PER HOUR/TITRATED, AS NEEDED, IV DRIP
     Route: 041
     Dates: start: 20050112, end: 20050209

REACTIONS (20)
  - BRAIN DAMAGE [None]
  - BRAIN DEATH [None]
  - CONFUSIONAL STATE [None]
  - CONTRAINDICATION TO MEDICAL TREATMENT [None]
  - DEVICE LEAKAGE [None]
  - DRUG INEFFECTIVE [None]
  - ENCEPHALOPATHY [None]
  - ENDOCARDITIS [None]
  - HAEMORRHAGE [None]
  - HEPARIN-INDUCED THROMBOCYTOPENIA [None]
  - IMMOBILE [None]
  - INAPPROPRIATE SCHEDULE OF DRUG ADMINISTRATION [None]
  - INCORRECT DOSE ADMINISTERED [None]
  - INFECTION [None]
  - LOSS OF CONSCIOUSNESS [None]
  - MEDICATION ERROR [None]
  - MENTAL STATUS CHANGES [None]
  - SEDATION [None]
  - SKIN DISCOLOURATION [None]
  - SLEEP APNOEA SYNDROME [None]
